FAERS Safety Report 17672972 (Version 1)
Quarter: 2020Q2

REPORT INFORMATION
  Report Type: Spontaneous
  Country: US (occurrence: US)
  Receive Date: 20200416
  Receipt Date: 20200416
  Transmission Date: 20200713
  Serious: No
  Sender: FDA-Public Use
  Company Number: US-GLAXOSMITHKLINE-US2020062900

PATIENT
  Age: 34 Year
  Sex: Female

DRUGS (2)
  1. GABAPENTIN. [Suspect]
     Active Substance: GABAPENTIN
     Indication: NERVOUS SYSTEM DISORDER
     Dosage: UNK
  2. BENLYSTA [Suspect]
     Active Substance: BELIMUMAB
     Indication: PRODUCT USED FOR UNKNOWN INDICATION
     Dosage: UNK

REACTIONS (4)
  - Injection site pain [Unknown]
  - Underdose [Unknown]
  - Accidental exposure to product [Recovered/Resolved]
  - Wrong technique in device usage process [Not Recovered/Not Resolved]

NARRATIVE: CASE EVENT DATE: 20200410
